FAERS Safety Report 15622203 (Version 3)
Quarter: 2018Q4

REPORT INFORMATION
  Report Type: Report from Study
  Country: US (occurrence: US)
  Receive Date: 20181115
  Receipt Date: 20181121
  Transmission Date: 20190205
  Serious: Yes (Hospitalization, Other)
  Sender: FDA-Public Use
  Company Number: US-TEVA-2011-17487

PATIENT
  Age: 48 Year
  Sex: Male

DRUGS (4)
  1. INSULIN [Suspect]
     Active Substance: INSULIN NOS
     Indication: OVERDOSE
     Route: 065
  2. BACLOFEN (WATSON LABORATORIES) [Suspect]
     Active Substance: BACLOFEN
     Indication: PRODUCT USED FOR UNKNOWN INDICATION
     Route: 048
  3. NEBIVOLOL (UNKNOWN) [Suspect]
     Active Substance: NEBIVOLOL
     Indication: PRODUCT USED FOR UNKNOWN INDICATION
     Dosage: 300 MILLIGRAM DAILY;  (UNKNOWN)
     Route: 048
  4. DIAZEPAM (WATSON LABORATORIES) [Suspect]
     Active Substance: DIAZEPAM
     Indication: PRODUCT USED FOR UNKNOWN INDICATION
     Route: 065

REACTIONS (6)
  - Bradycardia [Recovered/Resolved]
  - Cardiac arrest [Recovered/Resolved]
  - Product administration error [Recovered/Resolved]
  - Coma scale abnormal [Recovered/Resolved]
  - Intentional overdose [Recovered/Resolved]
  - Suicide attempt [Unknown]
